FAERS Safety Report 9212884 (Version 1)
Quarter: 2013Q2

REPORT INFORMATION
  Report Type: Spontaneous
  Country: US (occurrence: None)
  Receive Date: 20130403
  Receipt Date: 20130403
  Transmission Date: 20140414
  Serious: Yes (Hospitalization)
  Sender: FDA-Public Use
  Company Number: None

PATIENT
  Age: 61 Year
  Sex: Male
  Weight: 101.83 kg

DRUGS (8)
  1. HIGH DOSE METHYLPREDNISOLONE 1,000MG/M2 [Suspect]
     Indication: CHRONIC LYMPHOCYTIC LEUKAEMIA
     Dosage: 1800 MG IV ON DAYS 1-3
     Route: 042
     Dates: start: 20130116, end: 20130328
  2. OFATUMUMAB [Concomitant]
  3. ATORVASTATIN [Concomitant]
  4. ONDANSETRON HCL [Concomitant]
  5. OXYCODONE [Concomitant]
  6. PROCHLORPERAZINE MALEATE [Concomitant]
  7. SULFAMETHOXAZOLE-TRIMETHOPRIM [Concomitant]
  8. ACYCLOVIR [Concomitant]

REACTIONS (2)
  - Chest pain [None]
  - Electrocardiogram ST segment depression [None]
